FAERS Safety Report 9559594 (Version 1)
Quarter: 2013Q3

REPORT INFORMATION
  Report Type: Spontaneous
  Country: US (occurrence: None)
  Receive Date: 20130909
  Receipt Date: 20130909
  Transmission Date: 20140515
  Serious: Yes (Hospitalization)
  Sender: FDA-Public Use
  Company Number: 371101

PATIENT
  Age: 55 Year
  Sex: Female
  Weight: 96.6 kg

DRUGS (12)
  1. VICTOZA (LIRAGLUTIDE) SOLUTION FOR INJECTION, 6 MG/ML [Suspect]
     Indication: TYPE 2 DIABETES MELLITUS
     Dosage: Q AM
     Route: 058
     Dates: start: 20120409
  2. ASPIRIN (ACETYLSALICYLIC ACID) [Concomitant]
  3. FENOFIBRATE (FENOFIBRATE) (FENOFIBRATE) [Concomitant]
  4. FERROUS GLUCONATE (FERROUS GLUCONATE) [Concomitant]
  5. GLIMEPIRIDE (GLIMEPIRIDE) [Concomitant]
  6. LEVEMIR (INSULIN DETEMIR) [Concomitant]
  7. LIOTHYRONINE SODIUM (T3) (LIOTHYRONINE SODIUM) [Concomitant]
  8. LISINOPRIL (LISINOPRIL) [Concomitant]
  9. METFORMIN ER (METFORMIN HYDROCHLORIDE) [Concomitant]
  10. SYNTHROID (LEVOTHYROXINE SODIUM) [Concomitant]
  11. UROCIT-K (POTASSIUM CITRATE) [Concomitant]
  12. VITAMIN D3 (COLECALCIFEROL) [Concomitant]

REACTIONS (2)
  - Pancreatitis [None]
  - Hepatic steatosis [None]
